FAERS Safety Report 9375522 (Version 3)
Quarter: 2013Q3

REPORT INFORMATION
  Report Type: Spontaneous
  Country: IE (occurrence: IE)
  Receive Date: 20130628
  Receipt Date: 20130806
  Transmission Date: 20140515
  Serious: Yes (Other)
  Sender: FDA-Public Use
  Company Number: CHPA2013IE010470

PATIENT
  Age: 64 Year
  Sex: Male
  Weight: 69.85 kg

DRUGS (1)
  1. VOLTAROL [Suspect]
     Indication: MUSCLE STRAIN
     Dosage: UNK, ONCE/SINGLE
     Route: 061

REACTIONS (5)
  - Rash erythematous [Recovered/Resolved]
  - Rash pruritic [Recovered/Resolved]
  - Local swelling [Unknown]
  - Blood pressure increased [Unknown]
  - Paraesthesia [Unknown]
